FAERS Safety Report 9119789 (Version 1)
Quarter: 2013Q1

REPORT INFORMATION
  Report Type: Spontaneous
  Country: US (occurrence: US)
  Receive Date: 20130226
  Receipt Date: 20130226
  Transmission Date: 20140127
  Serious: Yes (Other)
  Sender: FDA-Public Use
  Company Number: US-PFIZER INC-2013067025

PATIENT
  Age: 60 Year
  Sex: Female
  Weight: 67.6 kg

DRUGS (3)
  1. ESTRING [Suspect]
     Indication: VULVOVAGINAL DRYNESS
     Dosage: UNK
     Dates: start: 201211
  2. ESTRING [Suspect]
     Indication: VULVAL DISORDER
  3. PROLIA [Concomitant]
     Dosage: UNK, EVERY SIX MONTHS

REACTIONS (3)
  - Respiratory tract infection [Not Recovered/Not Resolved]
  - Fungal infection [Not Recovered/Not Resolved]
  - Blood cholesterol increased [Not Recovered/Not Resolved]
